FAERS Safety Report 10458778 (Version 1)
Quarter: 2014Q3

REPORT INFORMATION
  Report Type: Spontaneous
  Country: US (occurrence: None)
  Receive Date: 20140916
  Receipt Date: 20140916
  Transmission Date: 20150326
  Serious: Yes (Death)
  Sender: FDA-Public Use
  Company Number: None

PATIENT
  Age: 13 Year
  Sex: Female

DRUGS (1)
  1. TRACLEER [Suspect]
     Active Substance: BOSENTAN\BOSENTAN MONOHYDRATE

REACTIONS (9)
  - Dyspnoea [None]
  - Quality of life decreased [None]
  - Blood pressure increased [None]
  - Skin disorder [None]
  - Pain [None]
  - Fluid retention [None]
  - Dizziness [None]
  - Abasia [None]
  - Tremor [None]

NARRATIVE: CASE EVENT DATE: 20120919
